FAERS Safety Report 10553477 (Version 1)
Quarter: 2014Q4

REPORT INFORMATION
  Report Type: Spontaneous
  Country: US (occurrence: None)
  Receive Date: 20141023
  Receipt Date: 20141023
  Transmission Date: 20150529
  Serious: No
  Sender: FDA-Public Use
  Company Number: AP356-01097-SPO-US

PATIENT
  Age: 66 Year
  Sex: Female
  Weight: 83 kg

DRUGS (5)
  1. BYETTA PEN (EXENATIDE) [Concomitant]
  2. GLIPIZIDE (GLIPIZIDE) [Concomitant]
     Active Substance: GLIPIZIDE
  3. BELVIQ [Suspect]
     Active Substance: LORCASERIN HYDROCHLORIDE
     Indication: WEIGHT DECREASED
     Route: 048
     Dates: start: 20140527
  4. NEXIUM [Concomitant]
     Active Substance: ESOMEPRAZOLE MAGNESIUM
  5. ENALAPRIL (ENALAPRIL) [Concomitant]
     Active Substance: ENALAPRIL

REACTIONS (3)
  - Fatigue [None]
  - Nausea [None]
  - Vomiting [None]

NARRATIVE: CASE EVENT DATE: 20140527
